FAERS Safety Report 13562320 (Version 3)
Quarter: 2017Q3

REPORT INFORMATION
  Report Type: Spontaneous
  Country: IT (occurrence: IT)
  Receive Date: 20170519
  Receipt Date: 20170731
  Transmission Date: 20171127
  Serious: Yes (Other)
  Sender: FDA-Public Use
  Company Number: IT-ROCHE-1930480

PATIENT
  Age: 72 Year
  Sex: Female
  Weight: 90 kg

DRUGS (9)
  1. CARDIOASPIRIN [Concomitant]
     Active Substance: ASPIRIN
  2. RELVAR ELLIPTA [Concomitant]
     Active Substance: FLUTICASONE FUROATE\VILANTEROL TRIFENATATE
  3. SPIRIVA RESPIMAT [Concomitant]
     Active Substance: TIOTROPIUM BROMIDE
  4. AMINOFILINA [Concomitant]
     Active Substance: AMINOPHYLLINE
  5. PROCORALAN [Concomitant]
     Active Substance: IVABRADINE
     Route: 065
  6. PEPTAZOL (ITALY) [Concomitant]
     Route: 065
  7. HERCEPTIN [Suspect]
     Active Substance: TRASTUZUMAB
     Indication: BREAST CANCER
     Dosage: CYCLE ADMINISTRATION DATE: 07/MAR/2017
     Route: 058
     Dates: start: 20170214
  8. DIBASE [Concomitant]
     Active Substance: CHOLECALCIFEROL
     Route: 065
  9. PACLITAXEL. [Suspect]
     Active Substance: PACLITAXEL
     Indication: BREAST CANCER
     Dosage: CYCLE ADMINISTRATION DATE: 07/MAR/2017
     Route: 042
     Dates: start: 20170214

REACTIONS (4)
  - Epistaxis [Recovering/Resolving]
  - Haemorrhoids [Recovering/Resolving]
  - Constipation [Recovering/Resolving]
  - Pain in extremity [Recovering/Resolving]

NARRATIVE: CASE EVENT DATE: 20170216
